FAERS Safety Report 22291841 (Version 2)
Quarter: 2023Q2

REPORT INFORMATION
  Report Type: Spontaneous
  Country: DE (occurrence: DE)
  Receive Date: 20230507
  Receipt Date: 20230522
  Transmission Date: 20230722
  Serious: Yes (Other)
  Sender: FDA-Public Use
  Company Number: DE-BEH-2023156238

PATIENT
  Age: 62 Year
  Sex: Male
  Weight: 80 kg

DRUGS (4)
  1. PRIVIGEN [Suspect]
     Active Substance: HUMAN IMMUNOGLOBULIN G
     Indication: Chronic inflammatory demyelinating polyradiculoneuropathy
     Dosage: 30 GRAM, EVERY 6 WEEKS
     Route: 042
     Dates: start: 20220331
  2. PRIVIGEN [Suspect]
     Active Substance: HUMAN IMMUNOGLOBULIN G
     Dosage: 30 GRAM
     Route: 065
     Dates: start: 20220915
  3. PRIVIGEN [Suspect]
     Active Substance: HUMAN IMMUNOGLOBULIN G
     Dosage: 30 GRAM
     Route: 065
     Dates: start: 20221017
  4. PRIVIGEN [Suspect]
     Active Substance: HUMAN IMMUNOGLOBULIN G
     Dosage: 30 GRAM
     Route: 065
     Dates: start: 20221208

REACTIONS (6)
  - Pneumonia [Recovered/Resolved]
  - Deep vein thrombosis [Recovered/Resolved]
  - Pulmonary embolism [Not Recovered/Not Resolved]
  - Dyspnoea [Not Recovered/Not Resolved]
  - Benign prostatic hyperplasia [Recovered/Resolved]
  - Urinary tract infection [Recovered/Resolved]

NARRATIVE: CASE EVENT DATE: 20230110
